FAERS Safety Report 7377766-4 (Version None)
Quarter: 2011Q1

REPORT INFORMATION
  Report Type: 
  Country: None (occurrence: None)
  Receive Date: 20110328
  Receipt Date: 20110322
  Transmission Date: 20110831
  Serious: Yes (Other)
  Sender: FDA-Public Use
  Company Number: CA-PFIZER INC-2009176413

PATIENT
  Age: 49 Year
  Sex: Female
  Weight: 81.633 kg

DRUGS (14)
  1. LYRICA [Suspect]
     Indication: BACK PAIN
     Dosage: 150 MG, 4X/DAY
     Dates: end: 20090101
  2. RABEPRAZOLE [Concomitant]
     Dosage: 20 MG, 1X/DAY
  3. CIPRALEX [Concomitant]
     Dosage: 20 MG, 1X/DAY
  4. APO-BACLOFEN [Concomitant]
     Dosage: 20 MG, 3X/DAY
  5. LYRICA [Suspect]
     Dosage: 200 MG, 3X/DAY
     Dates: start: 20090101, end: 20090101
  6. SYNTHROID [Concomitant]
     Dosage: 0.125 MG, 1X/DAY
  7. ZOPLICONE [Concomitant]
     Dosage: 15 MG, 1X/DAY
  8. HYDROMORPHONE [Concomitant]
     Dosage: 16 MG, EVERY 4 HRS
  9. WELLBUTRIN [Concomitant]
     Dosage: 300 MG, 1X/DAY
  10. LYRICA [Suspect]
     Indication: NEURALGIA
     Dosage: 150 MG, 2X/DAY
     Route: 048
     Dates: start: 20060701, end: 20090101
  11. APO-AMITRIPTYLINE [Concomitant]
     Dosage: 50 MG, 2X/DAY
  12. APO-CLONAZEPAM [Concomitant]
     Dosage: 0.5 MG, 3X/DAY
  13. ESTROGENS [Concomitant]
     Dosage: 0.625 MG, 1X/DAY
  14. APO-TRAZODONE [Concomitant]
     Dosage: 50 MG, 1X/DAY

REACTIONS (15)
  - FATIGUE [None]
  - DYSTONIA [None]
  - CARDIAC DISORDER [None]
  - WEIGHT INCREASED [None]
  - BACK PAIN [None]
  - SWELLING FACE [None]
  - WITHDRAWAL SYNDROME [None]
  - OEDEMA PERIPHERAL [None]
  - SKIN DISCOLOURATION [None]
  - BREAST ENLARGEMENT [None]
  - DYSPNOEA [None]
  - HYPERHIDROSIS [None]
  - ERYTHEMA [None]
  - GAIT DISTURBANCE [None]
  - URINE OUTPUT DECREASED [None]
